FAERS Safety Report 5538598-2 (Version None)
Quarter: 2007Q4

REPORT INFORMATION
  Report Type: 
  Country: None (occurrence: None)
  Receive Date: 20071208
  Receipt Date: 20061214
  Transmission Date: 20080405
  Serious: No
  Sender: FDA-Public Use
  Company Number: US-AMGEN-KDL203626

PATIENT
  Sex: Female

DRUGS (17)
  1. ENBREL [Suspect]
     Indication: RHEUMATOID ARTHRITIS
     Route: 058
     Dates: start: 20061213
  2. PREDNISONE [Concomitant]
  3. METHOTREXATE [Concomitant]
  4. PLAQUENIL [Concomitant]
  5. EFFEXOR [Concomitant]
  6. CALCIUM [Concomitant]
  7. VITAMIN CAP [Concomitant]
  8. NORVASC [Concomitant]
  9. HYDROCODONE BITARTRATE [Concomitant]
  10. DOXEPIN HCL [Concomitant]
  11. LIPITOR [Concomitant]
  12. ASPIRIN [Concomitant]
  13. CALCITRIOL [Concomitant]
  14. FERROUS SULFATE TAB [Concomitant]
  15. PROTONIX [Concomitant]
  16. FOSAMAX [Concomitant]
  17. CYCLOBENZAPRINE HCL [Concomitant]

REACTIONS (1)
  - URTICARIA [None]
